FAERS Safety Report 20609858 (Version 1)
Quarter: 2022Q1

REPORT INFORMATION
  Report Type: Spontaneous
  Country: IT (occurrence: IT)
  Receive Date: 20220318
  Receipt Date: 20220318
  Transmission Date: 20220423
  Serious: Yes (Other)
  Sender: FDA-Public Use
  Company Number: IT-CELLTRION INC.-2022IT002853

PATIENT

DRUGS (4)
  1. RITUXIMAB [Suspect]
     Active Substance: RITUXIMAB
     Indication: Immunochemotherapy
  2. CYTARABINE [Suspect]
     Active Substance: CYTARABINE
     Indication: Immunochemotherapy
  3. BENDAMUSTINE [Suspect]
     Active Substance: BENDAMUSTINE
     Indication: Immunochemotherapy
  4. LAMIVUDINE [Suspect]
     Active Substance: LAMIVUDINE
     Indication: Antiviral prophylaxis
     Dosage: 100 MG, QD

REACTIONS (2)
  - Hepatitis B reactivation [Unknown]
  - Off label use [Unknown]
